FAERS Safety Report 4886764-1 (Version None)
Quarter: 2005Q4

REPORT INFORMATION
  Report Type: 
  Country: None (occurrence: None)
  Receive Date: 20051220
  Receipt Date: 20041021
  Transmission Date: 20060501
  Serious: Yes (Other)
  Sender: FDA-Public Use
  Company Number: HQWYE042115SEP04

PATIENT
  Age: 40 Year
  Sex: Male
  Weight: 72.64 kg

DRUGS (4)
  1. EFFEXOR XR [Suspect]
     Indication: DEPRESSION
     Dosage: UNKNOWN DOSE FOR 4-5 YEARS - TRYING TO TAPER OFF FOR 2.5 MONTHS, ORAL
     Route: 048
     Dates: start: 20031205
  2. EFFEXOR XR [Suspect]
     Dosage: TOOK 2 SAMPLE PACKS OF 75 MG AND 37.5 MG, ORAL
     Route: 048
  3. EFFEXOR XR [Suspect]
     Dosage: 37.5 MG 1X PER 2 DAY, ORAL
     Route: 048
     Dates: start: 20040915
  4. ALLEGRA [Concomitant]

REACTIONS (6)
  - ANGER [None]
  - ASTHENIA [None]
  - DRUG WITHDRAWAL SYNDROME [None]
  - HEADACHE [None]
  - HYPOAESTHESIA [None]
  - NAUSEA [None]
